FAERS Safety Report 8543209-8 (Version None)
Quarter: 2012Q3

REPORT INFORMATION
  Report Type: 
  Country: None (occurrence: None)
  Receive Date: 20120727
  Receipt Date: 20120719
  Transmission Date: 20120928
  Serious: No
  Sender: FDA-Public Use
  Company Number: ENDO PHARMACEUTICALS INC.-OPCR20121665

PATIENT
  Sex: Female

DRUGS (1)
  1. OPANA ER [Suspect]
     Indication: ACCIDENTAL EXPOSURE
     Dosage: 20 MG
     Route: 048
     Dates: start: 20120718, end: 20120718

REACTIONS (1)
  - ACCIDENTAL EXPOSURE [None]
